FAERS Safety Report 11685961 (Version 1)
Quarter: 2015Q4

REPORT INFORMATION
  Report Type: Report from Study
  Country: US (occurrence: US)
  Receive Date: 20151030
  Receipt Date: 20151030
  Transmission Date: 20160304
  Serious: Yes (Hospitalization)
  Sender: FDA-Public Use
  Company Number: US-BIOGENIDEC-2015BI144823

PATIENT
  Age: 64 Year
  Sex: Female

DRUGS (9)
  1. XALATAN [Concomitant]
     Active Substance: LATANOPROST
  2. TECFIDERA [Suspect]
     Active Substance: DIMETHYL FUMARATE
     Indication: MULTIPLE SCLEROSIS
     Route: 048
     Dates: start: 201309
  3. TECFIDERA [Suspect]
     Active Substance: DIMETHYL FUMARATE
     Indication: MULTIPLE SCLEROSIS
     Route: 048
  4. KEPPRA [Concomitant]
     Active Substance: LEVETIRACETAM
  5. SIMCOR [Concomitant]
     Active Substance: NIACIN\SIMVASTATIN
  6. PROVIGIL [Concomitant]
     Active Substance: MODAFINIL
  7. POTASSIUM CHLORIDE. [Concomitant]
     Active Substance: POTASSIUM CHLORIDE
  8. NORVASC [Concomitant]
     Active Substance: AMLODIPINE BESYLATE
  9. VITAMIN E [Concomitant]
     Active Substance: .ALPHA.-TOCOPHEROL

REACTIONS (1)
  - Biopsy brain [Unknown]
